FAERS Safety Report 5908796-4 (Version None)
Quarter: 2008Q3

REPORT INFORMATION
  Report Type: 
  Country: None (occurrence: None)
  Receive Date: 20080930
  Receipt Date: 20080916
  Transmission Date: 20090109
  Serious: Yes (Hospitalization)
  Sender: FDA-Public Use
  Company Number: 430074J08USA

PATIENT
  Age: 53 Year
  Sex: Female
  Weight: 52.2 kg

DRUGS (3)
  1. NOVANTRONE [Suspect]
     Indication: MULTIPLE SCLEROSIS
     Dates: start: 20050101, end: 20071101
  2. TYSABRI [Suspect]
     Dates: start: 20080201
  3. CLONAZEPAM [Concomitant]

REACTIONS (1)
  - CARDIAC FAILURE CONGESTIVE [None]
